FAERS Safety Report 15034418 (Version 1)
Quarter: 2018Q2

REPORT INFORMATION
  Report Type: Spontaneous
  Country: FR (occurrence: FR)
  Receive Date: 20180620
  Receipt Date: 20180620
  Transmission Date: 20180711
  Serious: Yes (Hospitalization)
  Sender: FDA-Public Use
  Company Number: FR-009507513-1806FRA004760

PATIENT
  Age: 92 Year
  Sex: Male

DRUGS (7)
  1. LOSARTAN POTASSIUM. [Suspect]
     Active Substance: LOSARTAN POTASSIUM
     Dosage: 50 MG, QD
     Route: 048
     Dates: end: 20180505
  2. SPASFON [Concomitant]
     Dosage: UNK
  3. ZOLPIDEM [Concomitant]
     Active Substance: ZOLPIDEM\ZOLPIDEM TARTRATE
     Dosage: UNK
  4. HAVLANE [Concomitant]
     Active Substance: LOPRAZOLAM
     Dosage: UNK
  5. REPAGLINIDE. [Concomitant]
     Active Substance: REPAGLINIDE
     Dosage: UNK
  6. PREVISCAN (FLUINDIONE) [Suspect]
     Active Substance: FLUINDIONE
     Indication: PULMONARY EMBOLISM
     Dosage: 1.5 DF, QD
     Route: 048
     Dates: end: 20180503
  7. UROREC [Concomitant]
     Active Substance: SILODOSIN

REACTIONS (3)
  - Anaemia [Not Recovered/Not Resolved]
  - Acute kidney injury [Recovering/Resolving]
  - Haemorrhage [Recovered/Resolved]

NARRATIVE: CASE EVENT DATE: 20180503
